FAERS Safety Report 5190991-6 (Version None)
Quarter: 2006Q4

REPORT INFORMATION
  Report Type: 
  Country: None (occurrence: None)
  Receive Date: 20061224
  Receipt Date: 20061213
  Transmission Date: 20070319
  Serious: Yes (Hospitalization, Other)
  Sender: FDA-Public Use
  Company Number: US-ELI_LILLY_AND_COMPANY-US200612002477

PATIENT
  Age: 42 Year
  Sex: Male
  Weight: 112 kg

DRUGS (8)
  1. OLANZAPINE [Suspect]
     Indication: SCHIZOPHRENIA, PARANOID TYPE
     Dosage: 40 MG, EACH EVENING
     Route: 048
  2. OLANZAPINE [Suspect]
     Dosage: 20 MG, EACH EVENING
  3. BENAZEPRIL HYDROCHLORIDE [Concomitant]
     Indication: HYPERTENSION
     Dosage: UNK, UNK
  4. CLONIDINE HCL [Concomitant]
     Indication: HYPERTENSION
     Dosage: UNK, UNK
  5. DILTIAZEM HCL [Concomitant]
     Indication: HYPERTENSION
     Dosage: UNK, UNK
  6. FUROSEMIDE [Concomitant]
     Indication: HYPERTENSION
     Dosage: UNK, UNK
  7. DIVALPROEX SODIUM [Concomitant]
     Dosage: 1500 MG, UNK
  8. ZIPRASIDONE HCL [Concomitant]
     Indication: SCHIZOPHRENIA, PARANOID TYPE

REACTIONS (12)
  - ACTIVITIES OF DAILY LIVING IMPAIRED [None]
  - ASTHENIA [None]
  - BLOOD CREATININE INCREASED [None]
  - BLOOD POTASSIUM INCREASED [None]
  - BLOOD SODIUM DECREASED [None]
  - BLOOD UREA INCREASED [None]
  - DIABETIC KETOACIDOSIS [None]
  - DYSARTHRIA [None]
  - GAIT DISTURBANCE [None]
  - LETHARGY [None]
  - MYOCARDIAL INFARCTION [None]
  - TACHYCARDIA [None]
